FAERS Safety Report 21527668 (Version 7)
Quarter: 2025Q4

REPORT INFORMATION
  Report Type: Report from Study
  Country: US (occurrence: US)
  Receive Date: 20221031
  Receipt Date: 20251015
  Transmission Date: 20260117
  Serious: Yes (Other)
  Sender: TAKEDA
  Company Number: US-SHIRE-US201923904AA

PATIENT
  Sex: Female

DRUGS (2)
  1. HUMAN IMMUNOGLOBULIN G [Suspect]
     Active Substance: HUMAN IMMUNOGLOBULIN G
     Indication: Primary immunodeficiency syndrome
     Dosage: UNK
  2. HUMAN IMMUNOGLOBULIN G [Suspect]
     Active Substance: HUMAN IMMUNOGLOBULIN G
     Dosage: UNK

REACTIONS (27)
  - Bacterial infection [Unknown]
  - Viral infection [Unknown]
  - Nephrolithiasis [Unknown]
  - Systemic lupus erythematosus [Unknown]
  - Addison^s disease [Unknown]
  - Sjogren^s syndrome [Unknown]
  - Product dose omission issue [Unknown]
  - Fall [Unknown]
  - Corneal abrasion [Recovering/Resolving]
  - Multiple allergies [Unknown]
  - Adrenal disorder [Unknown]
  - Sinus disorder [Recovering/Resolving]
  - Thyroid disorder [Unknown]
  - Chlorine sensitivity [Unknown]
  - Vasculitis [Unknown]
  - Parathyroid disorder [Unknown]
  - Product administration interrupted [Unknown]
  - Hypersomnia [Recovering/Resolving]
  - Asthma [Recovering/Resolving]
  - Malaise [Unknown]
  - Headache [Unknown]
  - Pain [Recovering/Resolving]
  - Rash pruritic [Recovering/Resolving]
  - Pituitary-dependent Cushing^s syndrome [Unknown]
  - Device issue [Unknown]
  - Fibromyalgia [Unknown]
  - Arthropathy [Unknown]

NARRATIVE: CASE EVENT DATE: 20230323
